FAERS Safety Report 9068731 (Version 1)
Quarter: 2013Q1

REPORT INFORMATION
  Report Type: Spontaneous
  Country: AU (occurrence: AU)
  Receive Date: 20130215
  Receipt Date: 20130215
  Transmission Date: 20140127
  Serious: Yes (Hospitalization)
  Sender: FDA-Public Use
  Company Number: AU-009507513-1302AUS005193

PATIENT
  Age: 61 Year
  Sex: Female

DRUGS (3)
  1. RIBAVIRIN [Suspect]
     Indication: HEPATITIS
     Dosage: 800 MG, QD
  2. TELAPREVIR [Suspect]
     Indication: HEPATITIS
     Dosage: 2250 MG, QD
     Dates: start: 20120814, end: 20121008
  3. PEGASYS [Suspect]
     Dosage: 180 MG, QW
     Dates: start: 2012

REACTIONS (1)
  - Drug reaction with eosinophilia and systemic symptoms [Not Recovered/Not Resolved]
